FAERS Safety Report 5267946-6 (Version None)
Quarter: 2007Q1

REPORT INFORMATION
  Report Type: 
  Country: None (occurrence: None)
  Receive Date: 20061213
  Receipt Date: 20030321
  Transmission Date: 20070707
  Serious: No
  Sender: FDA-Public Use
  Company Number: 2001UW07503

PATIENT
  Age: 70 Year
  Sex: Female
  Weight: 93.441 kg

DRUGS (11)
  1. ARIMIDEX [Suspect]
     Indication: BREAST CANCER
     Dosage: 1 MG DAILY PO
     Route: 048
     Dates: start: 19990525
  2. NOLVADEX [Suspect]
     Indication: BREAST CANCER
     Dosage: 20 MG DAILY PO
     Route: 048
     Dates: start: 19990525
  3. GLYBURIDE [Concomitant]
  4. VITAMIN E [Concomitant]
  5. ASCORBIC ACID [Concomitant]
  6. CALCIUM MAGNESIUM ZINC [Concomitant]
  7. DEMADEX [Concomitant]
  8. VITAMIN CAP [Concomitant]
  9. LESCOL [Concomitant]
  10. SOY ISOFLAVONES [Concomitant]
  11. ALDACTONE [Concomitant]

REACTIONS (1)
  - CATARACT [None]
